FAERS Safety Report 8052649 (Version 3)
Quarter: 2013Q3

REPORT INFORMATION
  Report Type: Report from Study
  Country: DE (occurrence: DE)
  Receive Date: 20110725
  Receipt Date: 20130809
  Transmission Date: 20140515
  Serious: Yes (Hospitalization)
  Sender: FDA-Public Use
  Company Number: DE-PFIZER INC-2011163281

PATIENT
  Age: 86 Year
  Sex: Female
  Weight: 47 kg

DRUGS (4)
  1. SUNITINIB MALATE [Suspect]
     Indication: METASTATIC RENAL CELL CARCINOMA
     Dosage: 50 MG, 1X/DAY
     Route: 048
     Dates: start: 20110610, end: 20110714
  2. ENAHEXAL [Concomitant]
     Dosage: 5 MG IN THE MORNING, 2.5 MG IN THE EVENING
  3. BELOC ZOK [Concomitant]
     Dosage: 95 MG IN THE MORNING, 47.5 MG IN THE EVENING
  4. MOVICOL [Concomitant]
     Dosage: 1 DF, 2X/DAY

REACTIONS (5)
  - Fatigue [Not Recovered/Not Resolved]
  - Thrombocytopenia [Recovered/Resolved]
  - Hyponatraemia [Recovered/Resolved]
  - Alkalosis hypochloraemic [Not Recovered/Not Resolved]
  - General physical health deterioration [Not Recovered/Not Resolved]
